FAERS Safety Report 23161737 (Version 1)
Quarter: 2023Q4

REPORT INFORMATION
  Report Type: Report from Study
  Country: US (occurrence: US)
  Receive Date: 20231108
  Receipt Date: 20231108
  Transmission Date: 20240109
  Serious: No
  Sender: FDA-Public Use
  Company Number: US-ALXN-A202309469

PATIENT
  Sex: Male

DRUGS (1)
  1. STRENSIQ [Suspect]
     Active Substance: ASFOTASE ALFA
     Indication: Hypophosphatasia
     Dosage: UNK, EVERY THREE DAY
     Route: 065

REACTIONS (3)
  - Drug intolerance [Unknown]
  - Off label use [Unknown]
  - Injection site pain [Not Recovered/Not Resolved]
